FAERS Safety Report 6967982-5 (Version None)
Quarter: 2010Q3

REPORT INFORMATION
  Report Type: 
  Country: None (occurrence: None)
  Receive Date: 20100907
  Receipt Date: 20100903
  Transmission Date: 20110219
  Serious: Yes (Hospitalization, Disabling)
  Sender: FDA-Public Use
  Company Number: A0866308A

PATIENT
  Age: 14 Year
  Sex: Male
  Weight: 58.6 kg

DRUGS (8)
  1. VERAMYST [Suspect]
     Indication: PRODUCT USED FOR UNKNOWN INDICATION
     Dosage: 1SPR TWICE PER DAY
     Route: 045
     Dates: start: 20100520, end: 20100529
  2. ALLERGY MEDICATION [Suspect]
     Indication: PRODUCT USED FOR UNKNOWN INDICATION
     Route: 065
     Dates: end: 20100101
  3. SINGULAIR [Concomitant]
  4. XYZAL [Concomitant]
  5. PATANASE [Concomitant]
  6. AFRIN [Concomitant]
  7. DILANTIN [Concomitant]
     Indication: CONVULSION PROPHYLAXIS
     Dosage: 100MG IN THE MORNING
     Route: 065
  8. DILANTIN [Concomitant]
     Dosage: 200MG AT NIGHT
     Route: 065

REACTIONS (7)
  - ACUTE DISSEMINATED ENCEPHALOMYELITIS [None]
  - DISORIENTATION [None]
  - GRAND MAL CONVULSION [None]
  - HEADACHE [None]
  - IMPAIRED DRIVING ABILITY [None]
  - INCONTINENCE [None]
  - SOMNOLENCE [None]
